FAERS Safety Report 15330626 (Version 1)
Quarter: 2018Q3

REPORT INFORMATION
  Report Type: Spontaneous
  Country: DE (occurrence: DE)
  Receive Date: 20180829
  Receipt Date: 20180829
  Transmission Date: 20181010
  Serious: Yes (Hospitalization)
  Sender: FDA-Public Use
  Company Number: PHHY2018DE081407

PATIENT
  Age: 18 Year
  Sex: Female
  Weight: 58 kg

DRUGS (8)
  1. OMEPRAZOL [Concomitant]
     Active Substance: OMEPRAZOLE
     Indication: PRODUCT USED FOR UNKNOWN INDICATION
     Dosage: 30 MG
     Route: 048
  2. KREON 25000 [Concomitant]
     Active Substance: PANCRELIPASE
     Indication: PANCREATIC FAILURE
     Route: 048
  3. FORMOTEROL [Concomitant]
     Active Substance: FORMOTEROL
     Indication: PRODUCT USED FOR UNKNOWN INDICATION
     Dosage: 12 UG, QD
     Route: 055
  4. MUCOCLEAR [Concomitant]
     Indication: PRODUCT USED FOR UNKNOWN INDICATION
     Dosage: 4 ML, QD
     Route: 055
  5. SALBUTAMOL [Concomitant]
     Active Substance: ALBUTEROL
     Indication: PRODUCT USED FOR UNKNOWN INDICATION
     Dosage: 2 ?G/L, QD
     Route: 055
  6. ITRACONAZOLE. [Suspect]
     Active Substance: ITRACONAZOLE
     Indication: CYSTIC FIBROSIS
     Dosage: 300 MG, QD
     Route: 048
  7. ORKAMBI [Suspect]
     Active Substance: IVACAFTOR\LUMACAFTOR
     Indication: BRONCHOPULMONARY ASPERGILLOSIS
     Dosage: 2 ?G/L, BID
     Route: 048
  8. TOBRAMYCIN. [Concomitant]
     Active Substance: TOBRAMYCIN
     Indication: PSEUDOMONAS INFECTION
     Dosage: 160 MG, QD
     Route: 055

REACTIONS (6)
  - Tachycardia [Recovering/Resolving]
  - Abdominal pain upper [Recovering/Resolving]
  - Peripheral vascular disorder [Recovering/Resolving]
  - Dyspnoea [Recovering/Resolving]
  - Paraesthesia [Recovering/Resolving]
  - Tension headache [Recovering/Resolving]

NARRATIVE: CASE EVENT DATE: 20180609
